FAERS Safety Report 7941215-5 (Version None)
Quarter: 2011Q4

REPORT INFORMATION
  Report Type: 
  Country: None (occurrence: None)
  Receive Date: 20111122
  Receipt Date: 20111111
  Transmission Date: 20120403
  Serious: Yes (Other)
  Sender: FDA-Public Use
  Company Number: 2011P1010260

PATIENT
  Age: 51 Year
  Sex: Female
  Weight: 58.9676 kg

DRUGS (6)
  1. FENTANYL [Suspect]
     Indication: PAIN
     Dosage: 1 PATCH;Q3D;TDER
     Route: 062
     Dates: end: 20110501
  2. FENTANYL [Suspect]
     Indication: PAIN
     Dosage: ;TDER
     Route: 062
     Dates: start: 20111001
  3. FENTANYL [Suspect]
     Indication: PAIN
     Dosage: 1 PATCH;Q2D;TDER
     Route: 062
     Dates: start: 20110501, end: 20111001
  4. SLEEP MEDICATIONS [Concomitant]
  5. HORMONES [Concomitant]
  6. THYROID  MEDICATION [Concomitant]

REACTIONS (8)
  - ASTHENIA [None]
  - AMNESIA [None]
  - COGNITIVE DISORDER [None]
  - BLOOD LEAD INCREASED [None]
  - INSOMNIA [None]
  - BREAKTHROUGH PAIN [None]
  - BLOOD HEAVY METAL INCREASED [None]
  - ADRENAL DISORDER [None]
